FAERS Safety Report 9652466 (Version 2)
Quarter: 2013Q4

REPORT INFORMATION
  Report Type: Spontaneous
  Country: FR (occurrence: FR)
  Receive Date: 20131029
  Receipt Date: 20131105
  Transmission Date: 20140711
  Serious: Yes (Hospitalization)
  Sender: FDA-Public Use
  Company Number: FR-PFIZER INC-2013305489

PATIENT
  Age: 73 Year
  Sex: Female

DRUGS (3)
  1. ARTOTEC [Suspect]
     Indication: BACK PAIN
     Dosage: (0.2 MG/50 MG), 3 DF, DAILY
     Route: 048
     Dates: start: 20130928, end: 20130930
  2. LAROXYL [Suspect]
     Indication: BACK PAIN
     Dosage: 5 MG IN THE MORNING AND 5 TO 10 MG IN THE EVENING
     Route: 048
     Dates: start: 20130928, end: 20130930
  3. ZOPICLONE [Concomitant]
     Indication: PAIN
     Dosage: IN THE EVENING
     Dates: end: 20130930

REACTIONS (1)
  - Hyponatraemia [Recovering/Resolving]
